FAERS Safety Report 18846440 (Version 1)
Quarter: 2021Q1

REPORT INFORMATION
  Report Type: Report from Study
  Country: US (occurrence: US)
  Receive Date: 20210203
  Receipt Date: 20210203
  Transmission Date: 20210419
  Serious: No
  Sender: FDA-Public Use
  Company Number: US-EXELIXIS-CABO-20030119

PATIENT
  Sex: Male

DRUGS (1)
  1. CABOMETYX [Suspect]
     Active Substance: CABOZANTINIB S-MALATE
     Indication: OSTEOSARCOMA
     Dosage: 60 MG, QD
     Dates: start: 20200501, end: 20200603

REACTIONS (6)
  - Malignant neoplasm progression [Unknown]
  - Off label use [Unknown]
  - Glossodynia [Unknown]
  - Hepatic enzyme increased [Unknown]
  - Insomnia [Unknown]
  - Hand-foot-and-mouth disease [Unknown]
